FAERS Safety Report 9459683 (Version 1)
Quarter: 2013Q3

REPORT INFORMATION
  Report Type: Report from Study
  Country: IN (occurrence: IN)
  Receive Date: 20130815
  Receipt Date: 20130815
  Transmission Date: 20140515
  Serious: Yes (Other)
  Sender: FDA-Public Use
  Company Number: PHHY2013IN087705

PATIENT
  Age: 59 Year
  Sex: Female

DRUGS (3)
  1. ACLASTA [Suspect]
     Indication: OSTEOPOROSIS
     Dosage: 5 MG/ 100ML/ YEAR
     Route: 042
     Dates: start: 20110425
  2. ACLASTA [Suspect]
     Dosage: 5 MG/ 100ML/ YEAR
     Route: 042
  3. ACLASTA [Suspect]
     Dosage: 5 MG/ 100ML/ YEAR
     Route: 042
     Dates: start: 20130502

REACTIONS (2)
  - Fall [Recovering/Resolving]
  - Rib fracture [Recovering/Resolving]
